FAERS Safety Report 14068031 (Version 6)
Quarter: 2018Q2

REPORT INFORMATION
  Report Type: Report from Study
  Country: US (occurrence: US)
  Receive Date: 20171010
  Receipt Date: 20180508
  Transmission Date: 20180711
  Serious: Yes (Other)
  Sender: FDA-Public Use
  Company Number: US-AMGEN-USASL2017127557

PATIENT
  Age: 76 Year
  Sex: Female

DRUGS (3)
  1. REPATHA [Suspect]
     Active Substance: EVOLOCUMAB
     Indication: BLOOD CHOLESTEROL INCREASED
     Dosage: 140 MG, AS NECESSARY
     Route: 058
  2. REPATHA [Suspect]
     Active Substance: EVOLOCUMAB
     Indication: HYPERCHOLESTEROLAEMIA
     Dosage: 140 MG, Q2WK
     Route: 058
     Dates: start: 201703
  3. CRESTOR [Concomitant]
     Active Substance: ROSUVASTATIN CALCIUM
     Dosage: 40 MG TO 20 MG

REACTIONS (11)
  - Personality change [Unknown]
  - Hyperthyroidism [Unknown]
  - Low density lipoprotein decreased [Unknown]
  - Amnesia [Recovering/Resolving]
  - Back pain [Unknown]
  - Memory impairment [Recovering/Resolving]
  - Malaise [Unknown]
  - Intentional product misuse [Unknown]
  - Blood glucose increased [Unknown]
  - Dysphonia [Unknown]
  - Influenza [Unknown]

NARRATIVE: CASE EVENT DATE: 2017
